FAERS Safety Report 5796579-8 (Version None)
Quarter: 2008Q2

REPORT INFORMATION
  Report Type: 
  Country: None (occurrence: None)
  Receive Date: 20080630
  Receipt Date: 20080630
  Transmission Date: 20081010
  Serious: Yes (Other)
  Sender: FDA-Public Use
  Company Number: None

PATIENT
  Age: 46 Year
  Sex: Male
  Weight: 120.6568 kg

DRUGS (1)
  1. IBUPROFEN [Suspect]
     Indication: MUSCULOSKELETAL PAIN
     Dosage: 400MG 1 PO
     Route: 048
     Dates: start: 20080629, end: 20080629

REACTIONS (9)
  - ANXIETY [None]
  - DYSPNOEA [None]
  - FLUSHING [None]
  - MIDDLE INSOMNIA [None]
  - MUSCULOSKELETAL PAIN [None]
  - PHARYNGEAL OEDEMA [None]
  - PRURITUS [None]
  - RASH ERYTHEMATOUS [None]
  - SWOLLEN TONGUE [None]
